FAERS Safety Report 8901459 (Version 2)
Quarter: 2013Q2

REPORT INFORMATION
  Report Type: Spontaneous
  Country: US (occurrence: US)
  Receive Date: 20121108
  Receipt Date: 20130510
  Transmission Date: 20140414
  Serious: Yes (Hospitalization, Other)
  Sender: FDA-Public Use
  Company Number: US-MERCK-1211USA001992

PATIENT
  Age: 61 Year
  Sex: Male
  Weight: 70.75 kg

DRUGS (7)
  1. VICTRELIS [Suspect]
     Indication: HEPATITIS C
     Dosage: 800 MG, QD
     Route: 048
     Dates: start: 20120625, end: 20130108
  2. PEG-INTRON [Suspect]
     Indication: HEPATITIS C
     Dosage: 150 MICROGRAM, UNK
     Route: 058
     Dates: start: 20120525, end: 20130108
  3. REBETOL [Suspect]
     Indication: HEPATITIS C
     Dosage: 1.0 G, QD
     Route: 048
     Dates: start: 20120525
  4. REBETOL [Suspect]
     Dosage: 600 MG, QD
     Route: 048
     Dates: end: 20130108
  5. PRILOSEC [Concomitant]
     Dosage: 40 MG DAILY
  6. CITALOPRAM [Concomitant]
     Dosage: 40 MG DAILY
  7. EPOETIN [Concomitant]
     Dosage: 1000 IU, TIW
     Route: 058
     Dates: start: 20120912

REACTIONS (6)
  - Anaemia [Recovered/Resolved]
  - Interstitial lung disease [Unknown]
  - Memory impairment [Unknown]
  - Malaise [Unknown]
  - Fatigue [Unknown]
  - Decreased appetite [Unknown]
